FAERS Safety Report 5985460-7 (Version None)
Quarter: 2008Q4

REPORT INFORMATION
  Report Type: 
  Country: None (occurrence: None)
  Receive Date: 20081208
  Receipt Date: 20080320
  Transmission Date: 20090506
  Serious: No
  Sender: FDA-Public Use
  Company Number: US-AMGEN-KDL271022

PATIENT
  Sex: Female
  Weight: 63.6 kg

DRUGS (4)
  1. ENBREL [Suspect]
     Indication: ANKYLOSING SPONDYLITIS
     Route: 058
     Dates: start: 20070402, end: 20080204
  2. ADDERALL 10 [Concomitant]
     Dates: start: 20070601
  3. LORAZEPAM [Concomitant]
  4. SULFASALAZINE [Concomitant]
     Dates: start: 20040211

REACTIONS (8)
  - ACANTHOSIS [None]
  - DIZZINESS [None]
  - EAR INFECTION [None]
  - HOT FLUSH [None]
  - LICHENIFICATION [None]
  - LIVEDO RETICULARIS [None]
  - TONSILLAR HYPERTROPHY [None]
  - TONSILLAR INFLAMMATION [None]
